FAERS Safety Report 6983724-1 (Version None)
Quarter: 2010Q3

REPORT INFORMATION
  Report Type: 
  Country: None (occurrence: None)
  Receive Date: 20100914
  Receipt Date: 20020314
  Transmission Date: 20110219
  Serious: Yes (Hospitalization)
  Sender: FDA-Public Use
  Company Number: US-WYE-H07127208

PATIENT
  Age: 58 Year
  Sex: Male
  Weight: 90.5 kg

DRUGS (1)
  1. ADVIL LIQUI-GELS [Suspect]
     Indication: BACK PAIN
     Dosage: 5-6 DAILY
     Route: 048

REACTIONS (2)
  - CONDITION AGGRAVATED [None]
  - GASTROINTESTINAL HAEMORRHAGE [None]
